FAERS Safety Report 5678785-6 (Version None)
Quarter: 2008Q1

REPORT INFORMATION
  Report Type: 
  Country: None (occurrence: None)
  Receive Date: 20080324
  Receipt Date: 20080324
  Transmission Date: 20080703
  Serious: Yes (Hospitalization)
  Sender: FDA-Public Use
  Company Number: None

PATIENT
  Age: 13 Year
  Sex: Male
  Weight: 40.8237 kg

DRUGS (1)
  1. EFFEXOR [Suspect]
     Route: 048
     Dates: start: 19960919, end: 19970805

REACTIONS (6)
  - ANXIETY [None]
  - CONDITION AGGRAVATED [None]
  - CONFUSIONAL STATE [None]
  - DEREALISATION [None]
  - DIZZINESS [None]
  - HEADACHE [None]
